FAERS Safety Report 16090810 (Version 2)
Quarter: 2019Q1

REPORT INFORMATION
  Report Type: Spontaneous
  Country: US (occurrence: US)
  Receive Date: 20190319
  Receipt Date: 20190322
  Transmission Date: 20190418
  Serious: Yes (Other)
  Sender: FDA-Public Use
  Company Number: US-009507513-1903USA007214

PATIENT
  Age: 76 Year
  Sex: Female

DRUGS (3)
  1. FOSAMAX [Suspect]
     Active Substance: ALENDRONATE SODIUM
     Indication: BONE DISORDER
     Dosage: 70 MILLIGRAM, QW
     Route: 048
     Dates: start: 201807, end: 201902
  2. LEVOTHYROXINE SODIUM. [Concomitant]
     Active Substance: LEVOTHYROXINE SODIUM
     Dosage: UNK
  3. VITAMIN D [Concomitant]
     Active Substance: CHOLECALCIFEROL
     Dosage: UNK

REACTIONS (7)
  - Tooth abscess [Unknown]
  - Feeling cold [Unknown]
  - Body temperature abnormal [Unknown]
  - Thyroid disorder [Unknown]
  - Asthenia [Unknown]
  - Product use in unapproved indication [Unknown]
  - Kidney infection [Unknown]

NARRATIVE: CASE EVENT DATE: 201807
